FAERS Safety Report 5962340-4 (Version None)
Quarter: 2008Q4

REPORT INFORMATION
  Report Type: 
  Country: None (occurrence: None)
  Receive Date: 20081119
  Receipt Date: 20080923
  Transmission Date: 20090506
  Serious: No
  Sender: FDA-Public Use
  Company Number: WAES 0809USA04184

PATIENT
  Age: 71 Year
  Sex: Male
  Weight: 78.0187 kg

DRUGS (3)
  1. JANUVIA [Suspect]
     Dosage: PO
     Route: 048
  2. LUNESTA [Suspect]
     Indication: INSOMNIA
     Dosage: 2 MG/HS/PO ; 1 MG/HS/PO
     Route: 048
     Dates: start: 20080715, end: 20080901
  3. LUNESTA [Suspect]
     Indication: INSOMNIA
     Dosage: 2 MG/HS/PO ; 1 MG/HS/PO
     Route: 048
     Dates: start: 20080902

REACTIONS (5)
  - AGEUSIA [None]
  - ANOREXIA [None]
  - HEADACHE [None]
  - MIDDLE INSOMNIA [None]
  - WEIGHT DECREASED [None]
